FAERS Safety Report 5252656-1 (Version None)
Quarter: 2007Q1

REPORT INFORMATION
  Report Type: 
  Country: None (occurrence: None)
  Receive Date: 20070301
  Receipt Date: 20061103
  Transmission Date: 20070707
  Serious: No
  Sender: FDA-Public Use
  Company Number: US-GLAXOSMITHKLINE-A0626146A

PATIENT
  Age: 60 Year
  Sex: Female

DRUGS (5)
  1. LAMICTAL [Suspect]
     Indication: BIPOLAR DISORDER
     Dosage: 50MG TWICE PER DAY
     Route: 048
     Dates: start: 20061001, end: 20061101
  2. WELLBUTRIN SR [Concomitant]
  3. RISPERDAL [Concomitant]
  4. LEVODOPA [Concomitant]
  5. LITHIUM CARBONATE [Concomitant]

REACTIONS (2)
  - PHARMACEUTICAL PRODUCT COMPLAINT [None]
  - RASH PRURITIC [None]
